FAERS Safety Report 5146389-X (Version None)
Quarter: 2006Q4

REPORT INFORMATION
  Report Type: 
  Country: None (occurrence: None)
  Receive Date: 20061108
  Receipt Date: 20060626
  Transmission Date: 20070319
  Serious: Yes (Life-Threatening, Hospitalization)
  Sender: FDA-Public Use
  Company Number: JP-BOEHRINGER INGELHEIM PHARMACEUTICALS, INC.-2006-BP-07267NB

PATIENT
  Sex: Female
  Weight: 63.6 kg

DRUGS (7)
  1. MICARDIS [Suspect]
     Indication: HYPERTENSION
     Route: 048
     Dates: start: 20031015, end: 20031128
  2. CLINORIL [Suspect]
     Route: 048
     Dates: start: 20021022, end: 20030401
  3. TANATRIL [Suspect]
     Route: 048
     Dates: start: 20021022, end: 20031112
  4. PATYUNA (TICLOPIDINE HYDROCHLORIDE) [Concomitant]
     Route: 048
     Dates: start: 20021022
  5. FUROSEMIDE [Concomitant]
     Route: 048
     Dates: start: 20021022, end: 20031112
  6. ATELEC [Concomitant]
     Route: 048
     Dates: start: 20030311
  7. KALIMATE [Concomitant]
     Route: 048
     Dates: start: 20031112

REACTIONS (2)
  - RENAL IMPAIRMENT [None]
  - SINUS BRADYCARDIA [None]
